FAERS Safety Report 8163208-8 (Version None)
Quarter: 2012Q1

REPORT INFORMATION
  Report Type: 
  Country: None (occurrence: None)
  Receive Date: 20120224
  Receipt Date: 20110426
  Transmission Date: 20120608
  Serious: No
  Sender: FDA-Public Use
  Company Number: US-PFIZER INC-K201100508

PATIENT
  Age: 82 Year
  Sex: Female

DRUGS (5)
  1. LEVOTHYROXINE SODIUM [Concomitant]
     Dosage: UNK
  2. NITROGLYCERIN [Concomitant]
     Dosage: UNK
  3. CELECOXIB [Concomitant]
     Dosage: UNK
  4. FLECTOR [Suspect]
     Indication: ARTHRALGIA
     Dosage: 1 PATCH, SINGLE
     Route: 061
     Dates: start: 20110201
  5. AMLODIPINE [Concomitant]
     Dosage: UNK

REACTIONS (3)
  - AMNESIA [None]
  - DISORIENTATION [None]
  - NIGHTMARE [None]
